FAERS Safety Report 19356994 (Version 1)
Quarter: 2021Q2

REPORT INFORMATION
  Report Type: Spontaneous
  Country: US (occurrence: US)
  Receive Date: 20210602
  Receipt Date: 20210602
  Transmission Date: 20210717
  Serious: No
  Sender: FDA-Public Use
  Company Number: None

PATIENT
  Age: 72 Year
  Sex: Male
  Weight: 90 kg

DRUGS (2)
  1. CLONIDINE (CLONIDINE HCL 0.2MG TAB) [Suspect]
     Active Substance: CLONIDINE HYDROCHLORIDE
     Indication: PAIN
     Route: 048
     Dates: start: 20190531
  2. NITROGLYCERIN (NITROGLYCERIN 0.4MG TAB, SUBLINGUAL) [Suspect]
     Active Substance: NITROGLYCERIN
     Indication: PAIN
     Route: 060
     Dates: start: 20190531, end: 20190601

REACTIONS (1)
  - Angioedema [None]

NARRATIVE: CASE EVENT DATE: 20190601
